FAERS Safety Report 4846377-4 (Version None)
Quarter: 2005Q4

REPORT INFORMATION
  Report Type: 
  Country: None (occurrence: None)
  Receive Date: 20051206
  Receipt Date: 20051110
  Transmission Date: 20060501
  Serious: Yes (Life-Threatening, Hospitalization)
  Sender: FDA-Public Use
  Company Number: FR-BRISTOL-MYERS SQUIBB COMPANY-13181516

PATIENT
  Age: 47 Year
  Sex: Female

DRUGS (9)
  1. GLUCOPHAGE [Suspect]
     Indication: DIABETES MELLITUS NON-INSULIN-DEPENDENT
     Route: 048
     Dates: end: 20051005
  2. GLUCOR 100 [Suspect]
     Indication: DIABETES MELLITUS NON-INSULIN-DEPENDENT
     Route: 048
  3. DIAMICRON [Suspect]
     Indication: DIABETES MELLITUS NON-INSULIN-DEPENDENT
     Dosage: DOSAGE FORM = 30MG
  4. CITALOPRAM HYDROBROMIDE [Concomitant]
     Indication: DEPRESSION
     Dosage: DOSAGE FORM= 20MG
     Route: 048
     Dates: start: 20050930
  5. NOZINAN [Concomitant]
     Indication: DEPRESSION
     Route: 048
     Dates: start: 20050930
  6. IMOVANE [Concomitant]
     Indication: INSOMNIA
     Route: 048
  7. TAHOR [Concomitant]
     Indication: HYPERLIPIDAEMIA
     Route: 048
  8. HEPT-A-MYL [Concomitant]
     Indication: ORTHOSTATIC HYPOTENSION
  9. CETIRIZINE HCL [Concomitant]
     Indication: PRURITUS
     Route: 048

REACTIONS (9)
  - ASTHENIA [None]
  - DEHYDRATION [None]
  - DEPRESSION [None]
  - HAEMODIALYSIS [None]
  - HYPOGLYCAEMIA [None]
  - LACTIC ACIDOSIS [None]
  - METABOLIC ACIDOSIS [None]
  - RENAL FAILURE ACUTE [None]
  - VOMITING [None]
